FAERS Safety Report 15136224 (Version 1)
Quarter: 2018Q3

REPORT INFORMATION
  Report Type: Spontaneous
  Country: US (occurrence: US)
  Receive Date: 20180617
  Receipt Date: 20180617
  Transmission Date: 20181010
  Serious: Yes (Other)
  Sender: FDA-Public Use
  Company Number: None

PATIENT
  Age: 52 Year
  Sex: Female

DRUGS (20)
  1. CALCIUM W/D [Concomitant]
  2. VITAMIN B12 [Concomitant]
     Active Substance: CYANOCOBALAMIN
  3. ACETAZOLAMIDE. [Concomitant]
     Active Substance: ACETAZOLAMIDE
  4. GLUCOSAMINE [Concomitant]
     Active Substance: GLUCOSAMINE
  5. LORATADINE. [Concomitant]
     Active Substance: LORATADINE
  6. PHENYTOIN SOD [Concomitant]
  7. IRON [Concomitant]
     Active Substance: IRON
  8. CEFUROXINE AXETIL (CEFTIN) 500 MG [Suspect]
     Active Substance: CEFUROXIME AXETIL
     Indication: OROPHARYNGEAL PAIN
     Dosage: ?          QUANTITY:20 PILLS 2X ADAY;?
     Route: 048
     Dates: start: 20180519, end: 20180528
  9. OMEPRAZOLE. [Concomitant]
     Active Substance: OMEPRAZOLE
  10. RA DIPHENHYRAMINE [Concomitant]
  11. TRAMADA [Concomitant]
  12. DIAZEPAM. [Concomitant]
     Active Substance: DIAZEPAM
  13. RANITIDINE. [Concomitant]
     Active Substance: RANITIDINE
  14. FLINTSTONES [Concomitant]
  15. OXYCODONE [Concomitant]
     Active Substance: OXYCODONE
  16. TOPAMAX [Concomitant]
     Active Substance: TOPIRAMATE
  17. GABAPENTIN. [Concomitant]
     Active Substance: GABAPENTIN
  18. B?1 [Concomitant]
  19. MIRTAZAPINE. [Concomitant]
     Active Substance: MIRTAZAPINE
  20. ZINC. [Concomitant]
     Active Substance: ZINC

REACTIONS (1)
  - Peripheral swelling [None]

NARRATIVE: CASE EVENT DATE: 20180519
